FAERS Safety Report 11692564 (Version 2)
Quarter: 2016Q3

REPORT INFORMATION
  Report Type: Spontaneous
  Country: US (occurrence: US)
  Receive Date: 20151103
  Receipt Date: 20160915
  Transmission Date: 20161109
  Serious: No
  Sender: FDA-Public Use
  Company Number: US-PFIZER INC-2015359042

PATIENT
  Age: 47 Year
  Sex: Male
  Weight: 102.4 kg

DRUGS (3)
  1. LYRICA [Suspect]
     Active Substance: PREGABALIN
     Indication: NERVE INJURY
     Dosage: ONE IN THE MORNING AND TWO IN THE EVENING
     Route: 048
     Dates: end: 201510
  2. DILAUDID [Concomitant]
     Active Substance: HYDROMORPHONE HYDROCHLORIDE
     Indication: PAIN
     Dosage: LOW DOSAGE (6 MG OR 8 MG)
  3. LYRICA [Suspect]
     Active Substance: PREGABALIN
     Indication: NEUROPATHY PERIPHERAL

REACTIONS (4)
  - Withdrawal syndrome [Unknown]
  - Burning sensation [Not Recovered/Not Resolved]
  - Malaise [Unknown]
  - Pruritus [Not Recovered/Not Resolved]
